FAERS Safety Report 4340491-8 (Version None)
Quarter: 2004Q2

REPORT INFORMATION
  Report Type: 
  Country: None (occurrence: None)
  Receive Date: 20040414
  Receipt Date: 20040405
  Transmission Date: 20050107
  Serious: Yes (Other)
  Sender: FDA-Public Use
  Company Number: 2004207883JP

PATIENT
  Age: 25 Year
  Sex: Female

DRUGS (7)
  1. AZULFIDINE [Suspect]
     Dosage: 500MG/DAY, ORAL
     Route: 048
     Dates: start: 20040319, end: 20040319
  2. RIMATIL (BUCILLAMINE) [Concomitant]
  3. MOBIC [Concomitant]
  4. ALFAROL (ALFACALCIDOL) [Concomitant]
  5. TAGAMET [Concomitant]
  6. PREDONINE [Concomitant]
  7. FERRUM [Concomitant]

REACTIONS (2)
  - DYSPNOEA [None]
  - MALAISE [None]
